FAERS Safety Report 7519726-6 (Version None)
Quarter: 2011Q2

REPORT INFORMATION
  Report Type: 
  Country: None (occurrence: None)
  Receive Date: 20110602
  Receipt Date: 20110531
  Transmission Date: 20111010
  Serious: Yes (Other)
  Sender: FDA-Public Use
  Company Number: JP-PFIZER INC-2011047147

PATIENT
  Age: 58 Year
  Sex: Male

DRUGS (2)
  1. LYRICA [Suspect]
     Dosage: 75 MG/DAY
     Dates: start: 20110101, end: 20110303
  2. LYRICA [Suspect]
     Indication: NEUROPATHY PERIPHERAL
     Dosage: 150 MG/DAY
     Route: 048
     Dates: start: 20110203, end: 20110101

REACTIONS (3)
  - HYPOGLYCAEMIA [None]
  - SOMNOLENCE [None]
  - FALL [None]
